FAERS Safety Report 9675015 (Version 1)
Quarter: 2013Q4

REPORT INFORMATION
  Report Type: Spontaneous
  Country: US (occurrence: None)
  Receive Date: 20131105
  Receipt Date: 20131105
  Transmission Date: 20140711
  Serious: Yes (Hospitalization, Other)
  Sender: FDA-Public Use
  Company Number: AUR-APL-2013-09217

PATIENT
  Age: 29 Year
  Sex: Male

DRUGS (4)
  1. LEVETIRACETAM [Suspect]
     Indication: CONVULSION
  2. PHENYTOIN(PHENYTOIN) [Suspect]
     Indication: CONVULSION
  3. LORAZEPAM(LORAZEPAM) [Suspect]
     Indication: CONVULSION
  4. PHENOBARBITAL [Suspect]
     Indication: CONVULSION

REACTIONS (8)
  - Cardio-respiratory arrest [None]
  - Completed suicide [None]
  - Leukocytosis [None]
  - Blood potassium decreased [None]
  - Blood glucose increased [None]
  - Hypoxic-ischaemic encephalopathy [None]
  - Brain death [None]
  - Drug resistance [None]
